FAERS Safety Report 4600469-3 (Version None)
Quarter: 2005Q1

REPORT INFORMATION
  Report Type: 
  Country: None (occurrence: None)
  Receive Date: 20050304
  Receipt Date: 20050302
  Transmission Date: 20050727
  Serious: Yes (Hospitalization)
  Sender: FDA-Public Use
  Company Number: A044-002-005494

PATIENT
  Age: 84 Year
  Sex: Female
  Weight: 67.4 kg

DRUGS (1)
  1. ARICEPT [Suspect]
     Indication: DEMENTIA
     Dosage: 5 MG, 1 IN 1 D, ORAL
     Route: 048
     Dates: start: 20041207, end: 20041215

REACTIONS (4)
  - BRADYARRHYTHMIA [None]
  - EXTRASYSTOLES [None]
  - MYOCARDIAL INFARCTION [None]
  - SUPRAVENTRICULAR EXTRASYSTOLES [None]
